FAERS Safety Report 16631440 (Version 1)
Quarter: 2019Q3

REPORT INFORMATION
  Report Type: Spontaneous
  Country: BE (occurrence: BE)
  Receive Date: 20190725
  Receipt Date: 20190725
  Transmission Date: 20191004
  Serious: Yes (Hospitalization, Other)
  Sender: FDA-Public Use
  Company Number: BE-PFIZER INC-2019310671

PATIENT
  Age: 25 Year
  Sex: Female
  Weight: 78 kg

DRUGS (4)
  1. KETAMINE HCL [Suspect]
     Active Substance: KETAMINE HYDROCHLORIDE
     Indication: ENDOTRACHEAL INTUBATION
     Dosage: 50 MG, SINGLE
     Route: 042
     Dates: start: 20190529, end: 20190529
  2. SUFENTA [Suspect]
     Active Substance: SUFENTANIL CITRATE
     Indication: ENDOTRACHEAL INTUBATION
     Dosage: 5 MG (OR 1ML), SINGLE
     Route: 042
     Dates: start: 20190529, end: 20190529
  3. ESMERON [Suspect]
     Active Substance: ROCURONIUM BROMIDE
     Indication: ENDOTRACHEAL INTUBATION
     Dosage: 40 MG, SINGLE
     Route: 042
     Dates: start: 20190529, end: 20190529
  4. PROPOFOL. [Suspect]
     Active Substance: PROPOFOL
     Indication: ENDOTRACHEAL INTUBATION
     Dosage: 180 MG, SINGLE
     Route: 042
     Dates: start: 20190529, end: 20190529

REACTIONS (5)
  - Hypoventilation [Recovering/Resolving]
  - Erythema [Recovering/Resolving]
  - Hypotension [Recovering/Resolving]
  - Oxygen saturation decreased [Recovering/Resolving]
  - Rales [Unknown]

NARRATIVE: CASE EVENT DATE: 20190529
